FAERS Safety Report 7591981-6 (Version None)
Quarter: 2011Q3

REPORT INFORMATION
  Report Type: 
  Country: None (occurrence: None)
  Receive Date: 20110706
  Receipt Date: 20110627
  Transmission Date: 20111222
  Serious: Yes (Other)
  Sender: FDA-Public Use
  Company Number: US-US-EMD SERONO, INC.-7067947

PATIENT
  Sex: Male

DRUGS (2)
  1. REBIF [Suspect]
     Route: 058
  2. REBIF [Suspect]
     Indication: MULTIPLE SCLEROSIS
     Route: 058
     Dates: start: 20110511

REACTIONS (5)
  - ARRHYTHMIA [None]
  - IRRITABILITY [None]
  - PALPITATIONS [None]
  - STRESS [None]
  - ARTHRALGIA [None]
